FAERS Safety Report 8556816-3 (Version None)
Quarter: 2012Q3

REPORT INFORMATION
  Report Type: 
  Country: None (occurrence: None)
  Receive Date: 20120801
  Receipt Date: 20120725
  Transmission Date: 20120928
  Serious: Yes (Other)
  Sender: FDA-Public Use
  Company Number: US-BAYER-2012-075914

PATIENT
  Sex: Female

DRUGS (1)
  1. MIRENA [Suspect]
     Dosage: 20 MCG/24HR, CONT
     Route: 015
     Dates: start: 20120701

REACTIONS (6)
  - SYPHILIS [None]
  - DEVICE COMPONENT ISSUE [None]
  - URINARY TRACT INFECTION [None]
  - GONORRHOEA [None]
  - MEDICAL DEVICE DISCOMFORT [None]
  - PELVIC PAIN [None]
